FAERS Safety Report 17737106 (Version 3)
Quarter: 2020Q3

REPORT INFORMATION
  Report Type: Spontaneous
  Country: DK (occurrence: DK)
  Receive Date: 20200502
  Receipt Date: 20200703
  Transmission Date: 20201102
  Serious: Yes (Hospitalization)
  Sender: FDA-Public Use
  Company Number: DK-TEVA-2020-DK-1229445

PATIENT
  Age: 0 Year
  Sex: Male
  Weight: 4.14 kg

DRUGS (2)
  1. LAMOTRIGIN TEVA [Concomitant]
     Active Substance: LAMOTRIGINE
     Indication: MOOD SWINGS
     Dosage: 400MG. STRENGTH: 100 MG
     Route: 064
     Dates: start: 20141107, end: 20200403
  2. METHYLPHENIDATE TEVA [Suspect]
     Active Substance: METHYLPHENIDATE
     Indication: ATTENTION DEFICIT HYPERACTIVITY DISORDER
     Dosage: DOSE: 30 MG MORNING, 20 MG + 10 MG DINNER, 10 MG NIGHT?STRENGTH: 10 MG, 20 MG AND 30 MG
     Route: 064
     Dates: start: 20200206, end: 20200402

REACTIONS (2)
  - Extrasystoles [Recovered/Resolved]
  - Foetal exposure during pregnancy [Recovered/Resolved]

NARRATIVE: CASE EVENT DATE: 20200403
